FAERS Safety Report 16059690 (Version 2)
Quarter: 2019Q2

REPORT INFORMATION
  Report Type: Spontaneous
  Country: US (occurrence: US)
  Receive Date: 20190311
  Receipt Date: 20190515
  Transmission Date: 20190711
  Serious: Yes (Death, Hospitalization)
  Sender: FDA-Public Use
  Company Number: US-BAUSCH-BL-2019-007021

PATIENT
  Age: 30 Year
  Sex: Female

DRUGS (1)
  1. D-PENICILLAMINE [Suspect]
     Active Substance: PENICILLAMINE
     Indication: HEPATO-LENTICULAR DEGENERATION
     Dosage: 1-2 GRAMS PER DAY
     Route: 065

REACTIONS (1)
  - Goodpasture^s syndrome [Fatal]
